FAERS Safety Report 7176319-0 (Version None)
Quarter: 2010Q4

REPORT INFORMATION
  Report Type: 
  Country: None (occurrence: None)
  Receive Date: 20101220
  Receipt Date: 20101207
  Transmission Date: 20110411
  Serious: No
  Sender: FDA-Public Use
  Company Number: US-PFIZER INC-2010146112

PATIENT
  Sex: Female

DRUGS (1)
  1. ADVIL [Suspect]
     Dosage: UNK

REACTIONS (6)
  - HEADACHE [None]
  - NASAL DISCOMFORT [None]
  - NAUSEA [None]
  - PRODUCT CLOSURE ISSUE [None]
  - PRODUCT CONTAINER SEAL ISSUE [None]
  - PRODUCT ODOUR ABNORMAL [None]
